FAERS Safety Report 8949480 (Version 2)
Quarter: 2014Q2

REPORT INFORMATION
  Report Type: Spontaneous
  Country: KR (occurrence: KR)
  Receive Date: 20121206
  Receipt Date: 20131018
  Transmission Date: 20141212
  Serious: Yes (Other)
  Sender: FDA-Public Use
  Company Number: KR-PFIZER INC-2012305075

PATIENT
  Age: 30 Year
  Sex: Female

DRUGS (2)
  1. BUPIVACAINE HCL [Suspect]
     Dosage: 5 ML  BUPIVACAINE 0.5%
     Route: 008
  2. LIDOCAINE HCL [Suspect]
     Dosage: 20 ML LIDOCAINE 2%
     Route: 008

REACTIONS (3)
  - Arachnoiditis [Unknown]
  - Paraplegia [Unknown]
  - Anorectal disorder [Unknown]
